FAERS Safety Report 11444952 (Version 1)
Quarter: 2015Q3

REPORT INFORMATION
  Report Type: Report from Study
  Country: AR (occurrence: AR)
  Receive Date: 20150902
  Receipt Date: 20150902
  Transmission Date: 20151125
  Serious: Yes (Other)
  Sender: FDA-Public Use
  Company Number: PHHY2015AR104510

PATIENT
  Sex: Male

DRUGS (1)
  1. DIOVAN [Suspect]
     Active Substance: VALSARTAN
     Indication: HYPERTENSION
     Dosage: 1 DF, QD (80, NO UNITS PROVIDED)
     Route: 065

REACTIONS (4)
  - Carpal tunnel syndrome [Unknown]
  - Hypoaesthesia [Unknown]
  - Blood pressure increased [Recovered/Resolved]
  - Cataract [Recovered/Resolved]
